FAERS Safety Report 26157145 (Version 1)
Quarter: 2025Q4

REPORT INFORMATION
  Report Type: Spontaneous
  Country: CN (occurrence: CN)
  Receive Date: 20251215
  Receipt Date: 20251215
  Transmission Date: 20260118
  Serious: Yes (Other)
  Sender: DAIICHI
  Company Number: CN-DSJP-DS-2025-182647-CN

PATIENT
  Age: 72 Year
  Sex: Female
  Weight: 45 kg

DRUGS (2)
  1. TRASTUZUMAB DERUXTECAN [Suspect]
     Active Substance: TRASTUZUMAB DERUXTECAN
     Indication: Bile duct cancer
     Dosage: 300 MG, ONCE EVERY 3 WK
     Route: 041
     Dates: start: 20251010, end: 20251010
  2. CEFTRIAXONE SODIUM [Concomitant]
     Active Substance: CEFTRIAXONE SODIUM
     Indication: Pyrexia
     Dosage: 2 G, QD
     Route: 041
     Dates: start: 20251027, end: 20251027

REACTIONS (6)
  - Haemoglobin decreased [Recovering/Resolving]
  - White blood cell count decreased [Recovering/Resolving]
  - Neutrophil count decreased [Recovering/Resolving]
  - Pulmonary mass [Unknown]
  - Pulmonary fibrosis [Unknown]
  - Pericardial effusion [Unknown]

NARRATIVE: CASE EVENT DATE: 20251030
